FAERS Safety Report 9729305 (Version 1)
Quarter: 2013Q4

REPORT INFORMATION
  Report Type: Spontaneous
  Country: US (occurrence: US)
  Receive Date: 20131204
  Receipt Date: 20131204
  Transmission Date: 20140711
  Serious: Yes (Hospitalization)
  Sender: FDA-Public Use
  Company Number: US-BAYER-2013-147451

PATIENT
  Age: 48 Year
  Sex: Female

DRUGS (6)
  1. YAZ [Suspect]
     Dosage: UNK
  2. PROAMATINE [Concomitant]
     Dosage: 10 MG AT 7 AM AND 12 PM AND 5 MG AT 5 PM PRN
     Route: 048
  3. PROVIGIL [Concomitant]
     Dosage: 200 MG, DAILY
     Route: 048
  4. RITALIN [Concomitant]
     Dosage: 20 MG, DAILY
     Route: 048
  5. ZOLOFT [Concomitant]
     Dosage: 50 MG, DAILY
     Route: 048
  6. KEFLEX [Concomitant]
     Dosage: 500 MG 4 TIMES DAILY, FOR 2 DAYS
     Route: 048

REACTIONS (1)
  - Pulmonary embolism [Recovered/Resolved]
